FAERS Safety Report 9250495 (Version 1)
Quarter: 2013Q1

REPORT INFORMATION
  Report Type: Spontaneous
  Country: US (occurrence: None)
  Receive Date: 20130305
  Receipt Date: 20130305
  Transmission Date: 20140127
  Serious: Yes (Other)
  Sender: FDA-Public Use
  Company Number: 163-21880-12093069

PATIENT
  Age: 67 Year
  Sex: Female
  Weight: 123.38 kg

DRUGS (13)
  1. REVLIMID [Suspect]
     Indication: PLASMA CELL MYELOMA
     Dosage: 10 MG, 21 IN 28 D, PO
     Route: 048
     Dates: start: 20100110, end: 20120831
  2. OEMGA-3-ACID ETHYL ESTER (OMEGA-3-ACID ETHYL ESTER) [Concomitant]
  3. HYDROCODONE/APAP (VICODIN) [Concomitant]
  4. LEVOTHYROXINE (LEVOTHYROXINE) [Concomitant]
  5. ATORVASTATIN (ATORVASTATIN) [Concomitant]
  6. PENTOPRAZOLE (PANTOPRAZOLE) [Concomitant]
  7. CARVEDILOL (CARVEDILOL) [Concomitant]
  8. FUROSEMIDE (FUROSEMIDE) [Concomitant]
  9. ASPIRIN (ACETYLSALICYLIC ACID) [Concomitant]
  10. POTASSIUM )POTASSIUM) [Concomitant]
  11. VITAMIN B COMPLEX (B-KOMPLEX ^LECIVA^) [Concomitant]
  12. VITAMIN E (TOCOPHEROL) [Concomitant]
  13. VITAMIN C [Concomitant]

REACTIONS (1)
  - Pancytopenia [None]
